FAERS Safety Report 12432345 (Version 1)
Quarter: 2016Q2

REPORT INFORMATION
  Report Type: Spontaneous
  Country: US (occurrence: US)
  Receive Date: 20160603
  Receipt Date: 20160603
  Transmission Date: 20160815
  Serious: Yes (Hospitalization)
  Sender: FDA-Public Use
  Company Number: US-DSJP-DSU-2015-118915

PATIENT
  Sex: Female
  Weight: 105.21 kg

DRUGS (1)
  1. BENICAR [Suspect]
     Active Substance: OLMESARTAN MEDOXOMIL
     Indication: HYPERTENSION
     Dosage: 40 MG, QD
     Route: 048
     Dates: start: 2010, end: 201407

REACTIONS (7)
  - Malabsorption [Unknown]
  - Hepatic steatosis [Unknown]
  - Hepatic enzyme increased [Recovered/Resolved]
  - Cholelithiasis [Unknown]
  - Renal cyst [Unknown]
  - Acute kidney injury [Unknown]
  - Diverticulum intestinal [Unknown]
